FAERS Safety Report 10513145 (Version 1)
Quarter: 2014Q4

REPORT INFORMATION
  Report Type: Report from Study
  Country: US (occurrence: US)
  Receive Date: 20141013
  Receipt Date: 20141013
  Transmission Date: 20150528
  Serious: No
  Sender: FDA-Public Use
  Company Number: US-AMGEN-USASL2014076911

PATIENT
  Age: 78 Year
  Sex: Female

DRUGS (1)
  1. ENBREL [Suspect]
     Active Substance: ETANERCEPT
     Indication: RHEUMATOID ARTHRITIS
     Dosage: 50 MG, QWK
     Route: 065
     Dates: start: 20140604, end: 2014

REACTIONS (3)
  - Adverse event [Not Recovered/Not Resolved]
  - Colonoscopy [Not Recovered/Not Resolved]
  - Oesophagogastroduodenoscopy [Not Recovered/Not Resolved]

NARRATIVE: CASE EVENT DATE: 2014
